FAERS Safety Report 10042161 (Version 2)
Quarter: 2014Q2

REPORT INFORMATION
  Report Type: Spontaneous
  Country: US (occurrence: US)
  Receive Date: 20140327
  Receipt Date: 20140515
  Transmission Date: 20141212
  Serious: Yes (Hospitalization)
  Sender: FDA-Public Use
  Company Number: US-FRI-1000065890

PATIENT
  Age: 63 Year
  Sex: Male

DRUGS (2)
  1. SAPHRIS [Suspect]
     Indication: SCHIZOPHRENIA
     Dosage: 10MG
     Route: 060
     Dates: start: 2013, end: 201311
  2. ASPIRIN [Concomitant]
     Dosage: 81MG

REACTIONS (2)
  - Dyspnoea [Recovered/Resolved]
  - Tremor [Unknown]
